FAERS Safety Report 21381647 (Version 4)
Quarter: 2022Q4

REPORT INFORMATION
  Report Type: Report from Study
  Country: CA (occurrence: CA)
  Receive Date: 20220927
  Receipt Date: 20221020
  Transmission Date: 20230113
  Serious: Yes (Hospitalization, Other)
  Sender: FDA-Public Use
  Company Number: CA-ABBVIE-4131605

PATIENT
  Sex: Male

DRUGS (4)
  1. LUPRON DEPOT [Suspect]
     Active Substance: LEUPROLIDE ACETATE
     Indication: Prostate cancer
     Dosage: FORM STRENGTH: 30 MG
     Route: 030
     Dates: start: 20210602
  2. PLAVIX [Concomitant]
     Active Substance: CLOPIDOGREL BISULFATE
     Indication: Product used for unknown indication
     Dates: end: 2022
  3. LIPITOR [Concomitant]
     Active Substance: ATORVASTATIN CALCIUM
     Indication: Blood cholesterol increased
     Dates: start: 20210702
  4. SENNOSIDES [Concomitant]
     Active Substance: SENNOSIDES
     Indication: Blood cholesterol increased
     Dates: start: 20210702

REACTIONS (11)
  - Angina pectoris [Recovering/Resolving]
  - Asthenia [Not Recovered/Not Resolved]
  - Constipation [Unknown]
  - Balance disorder [Recovered/Resolved]
  - COVID-19 [Unknown]
  - Haematoma [Unknown]
  - Skin laceration [Recovering/Resolving]
  - General physical health deterioration [Not Recovered/Not Resolved]
  - Muscular weakness [Unknown]
  - Fall [Unknown]
  - Skin haemorrhage [Unknown]

NARRATIVE: CASE EVENT DATE: 20220101
